FAERS Safety Report 4722165-4 (Version None)
Quarter: 2005Q3

REPORT INFORMATION
  Report Type: 
  Country: None (occurrence: None)
  Receive Date: 20050722
  Receipt Date: 20040820
  Transmission Date: 20060218
  Serious: No
  Sender: FDA-Public Use
  Company Number: US-GLAXOSMITHKLINE-A0522927A

PATIENT
  Age: 83 Year
  Sex: Female

DRUGS (7)
  1. AVANDIA [Suspect]
     Dosage: 2MG TWICE PER DAY
     Route: 048
     Dates: start: 20040819
  2. LASIX [Suspect]
     Indication: DRUG USE FOR UNKNOWN INDICATION
  3. POTASSIUM CHLORIDE [Concomitant]
  4. CLONAZEPAM [Concomitant]
  5. PRAVACHOL [Concomitant]
  6. SYNTHROID [Concomitant]
  7. ATENOLOL [Concomitant]

REACTIONS (4)
  - COUGH [None]
  - DRUG INTERACTION [None]
  - URINE OUTPUT DECREASED [None]
  - WHEEZING [None]
